FAERS Safety Report 10785683 (Version 1)
Quarter: 2015Q1

REPORT INFORMATION
  Report Type: Spontaneous
  Country: BE (occurrence: BE)
  Receive Date: 20150211
  Receipt Date: 20150211
  Transmission Date: 20150721
  Serious: Yes (Other)
  Sender: FDA-Public Use
  Company Number: BE-MYLANLABS-2015M1003334

PATIENT

DRUGS (1)
  1. SUNITINIB [Suspect]
     Active Substance: SUNITINIB
     Dosage: 50 MG/DAY, FOUR WEEKS ON, TWO WEEKS OFF
     Route: 065

REACTIONS (2)
  - Gastrointestinal oedema [Unknown]
  - Diarrhoea [Unknown]
